FAERS Safety Report 11337288 (Version 1)
Quarter: 2015Q3

REPORT INFORMATION
  Report Type: Spontaneous
  Country: US (occurrence: US)
  Receive Date: 20150803
  Receipt Date: 20150803
  Transmission Date: 20151125
  Serious: No
  Sender: FDA-Public Use
  Company Number: US-ELI_LILLY_AND_COMPANY-US200601001091

PATIENT
  Age: 37 Year
  Sex: Male
  Weight: 109.75 kg

DRUGS (10)
  1. LIPITOR [Concomitant]
     Active Substance: ATORVASTATIN CALCIUM
     Dosage: 20 MG, EACH EVENING
     Dates: start: 20001103, end: 20011004
  2. RISPERDAL                               /SWE/ [Concomitant]
     Dosage: 1 MG, EACH EVENING
     Route: 048
     Dates: start: 20000609, end: 20000720
  3. BUPROPION HYDROCHLORIDE. [Concomitant]
     Active Substance: BUPROPION HYDROCHLORIDE
     Dosage: 100 MG, UNK
     Route: 048
     Dates: start: 20000602
  4. RISPERDAL                               /SWE/ [Concomitant]
     Dosage: 2 MG, UNK
     Dates: start: 20010507
  5. ZYPREXA [Suspect]
     Active Substance: OLANZAPINE
     Dosage: 20 MG, EACH EVENING
     Route: 048
     Dates: start: 20000609
  6. ZESTRIL                                 /USA/ [Concomitant]
     Dosage: 2.5 MG, EACH EVENING
     Dates: start: 20000831
  7. PROZAC [Concomitant]
     Active Substance: FLUOXETINE HYDROCHLORIDE
     Dosage: 40 MG, EACH MORNING
     Dates: start: 20000609
  8. LIPITOR [Concomitant]
     Active Substance: ATORVASTATIN CALCIUM
     Dosage: 40 MG, EACH EVENING
     Dates: start: 20011004
  9. ZYPREXA [Suspect]
     Active Substance: OLANZAPINE
     Indication: SCHIZOPHRENIA
     Dosage: UNK, UNKNOWN
     Route: 048
     Dates: start: 1997
  10. RISPERDAL                               /SWE/ [Concomitant]
     Dosage: 3 MG, EACH EVENING
     Route: 048
     Dates: start: 20000720, end: 20010507

REACTIONS (2)
  - Type 2 diabetes mellitus [Unknown]
  - Cellulitis [Recovering/Resolving]

NARRATIVE: CASE EVENT DATE: 20000621
